FAERS Safety Report 4901505-7 (Version None)
Quarter: 2006Q1

REPORT INFORMATION
  Report Type: 
  Country: None (occurrence: None)
  Receive Date: 20060203
  Receipt Date: 20060203
  Transmission Date: 20060701
  Serious: Yes (Hospitalization)
  Sender: FDA-Public Use
  Company Number: None

PATIENT
  Age: 74 Year
  Sex: Female
  Weight: 69.7 kg

DRUGS (1)
  1. ESTRADIOL [Suspect]
     Indication: BREAST CANCER STAGE IV
     Dosage: 10MG   3 TIMES DAILY  PO
     Route: 048
     Dates: start: 20060125

REACTIONS (3)
  - HYPONATRAEMIA [None]
  - NAUSEA [None]
  - VOMITING [None]
